FAERS Safety Report 5226995-4 (Version None)
Quarter: 2007Q1

REPORT INFORMATION
  Report Type: 
  Country: None (occurrence: None)
  Receive Date: 20070202
  Receipt Date: 20070124
  Transmission Date: 20070707
  Serious: Yes (Hospitalization)
  Sender: FDA-Public Use
  Company Number: PHEH2006US13088

PATIENT
  Age: 77 Year
  Sex: Male

DRUGS (8)
  1. EXJADE [Suspect]
     Indication: IRON OVERLOAD
     Dosage: 1500 MG, QD
     Route: 048
     Dates: start: 20060801, end: 20060903
  2. EXJADE [Suspect]
     Dosage: 1500 MG, QD
     Route: 048
     Dates: start: 20061016, end: 20061016
  3. LEVOTHYROXINE SODIUM [Concomitant]
     Indication: HYPOTHYROIDISM
     Dosage: 0.125 MG, QD
     Route: 048
  4. PREDNISONE [Concomitant]
     Indication: RHEUMATOID ARTHRITIS
     Dosage: 10 MG, QD
     Route: 048
  5. COZAAR [Concomitant]
     Indication: PULMONARY HYPERTENSION
     Dosage: 37.5 MG, QD
     Route: 048
     Dates: start: 20060301, end: 20060903
  6. COZAAR [Concomitant]
     Dosage: 12.5 MG, QD
     Route: 048
     Dates: start: 20061001, end: 20061007
  7. COZAAR [Concomitant]
     Dosage: 25 MG, QD
     Route: 048
     Dates: start: 20061008, end: 20061014
  8. COZAAR [Concomitant]
     Dosage: 37.5 MG, QD
     Route: 048
     Dates: start: 20061015

REACTIONS (19)
  - ASTHENIA [None]
  - ATRIOVENTRICULAR BLOCK SECOND DEGREE [None]
  - BLOOD PRESSURE FLUCTUATION [None]
  - BONE MARROW FAILURE [None]
  - BURNING SENSATION [None]
  - CHILLS [None]
  - DEHYDRATION [None]
  - DIARRHOEA [None]
  - ERYTHEMA [None]
  - HEART RATE IRREGULAR [None]
  - LEUKOCYTOCLASTIC VASCULITIS [None]
  - NEUTROPENIA [None]
  - ORTHOSTATIC HYPOTENSION [None]
  - PAIN OF SKIN [None]
  - PARAESTHESIA [None]
  - PYREXIA [None]
  - RASH GENERALISED [None]
  - SWELLING FACE [None]
  - THROMBOCYTOPENIA [None]
